FAERS Safety Report 21505419 (Version 1)
Quarter: 2022Q4

REPORT INFORMATION
  Report Type: Spontaneous
  Country: CN (occurrence: CN)
  Receive Date: 20221026
  Receipt Date: 20221026
  Transmission Date: 20230112
  Serious: Yes (Other)
  Sender: FDA-Public Use
  Company Number: None

PATIENT
  Age: 64 Year
  Sex: Male

DRUGS (3)
  1. MANNITOL [Suspect]
     Active Substance: MANNITOL
     Indication: Diuretic therapy
     Dosage: 125 MILLILETRE, 3 TIMES DAILY
     Route: 041
     Dates: start: 20220930, end: 20221004
  2. MANNITOL [Suspect]
     Active Substance: MANNITOL
     Indication: Brain neoplasm malignant
  3. MANNITOL [Suspect]
     Active Substance: MANNITOL
     Indication: Brain tumour operation

REACTIONS (1)
  - Hypokalaemia [Recovering/Resolving]

NARRATIVE: CASE EVENT DATE: 20221004
